FAERS Safety Report 7346076-3 (Version None)
Quarter: 2011Q1

REPORT INFORMATION
  Report Type: 
  Country: None (occurrence: None)
  Receive Date: 20110301
  Receipt Date: 20110216
  Transmission Date: 20110831
  Serious: Yes (Death, Life-Threatening, Hospitalization)
  Sender: FDA-Public Use
  Company Number: MY-JNJFOC-20110200645

PATIENT
  Age: 86 Year
  Sex: Male
  Weight: 64 kg

DRUGS (12)
  1. AMPHOTERICIN B [Concomitant]
  2. GENTAMICIN (GENTAMICIN) UNSPECIFIED [Concomitant]
  3. KETOPROFEN (KETOPROFEN) UNSPECIFIED [Concomitant]
  4. HYDROCORTISONE SODIUM SUCCINATE (HYDROCORTISONE SODIUM SUCCINATE) UNSP [Concomitant]
  5. MEROPENEM (MEROPENEM) UNSPECIFIED [Concomitant]
  6. DIPHENOXYLATE W/ ATROPINE SULFATE (DIPHENOXYLATE W/ ATROPINE SULFATE) [Concomitant]
  7. FUROSEMIDE (FUROSEMIDE) UNSPECIFIED [Concomitant]
  8. CEFUROXIME AXETIL (CEFUROXIME AXETIL) UNSPECIFIED [Concomitant]
  9. DECITABINE (DECITABINE) LYOPHILIZED POWDER [Suspect]
     Indication: PROPHYLAXIS
     Dosage: (20 MG/M2 INTRAVENOUS) (20 MG/M2, INTRAVENOUS) (20 MG/M2, INTRAVENOUS)
     Route: 042
     Dates: start: 20090226, end: 20100801
  10. DECITABINE (DECITABINE) LYOPHILIZED POWDER [Suspect]
     Indication: MYELODYSPLASTIC SYNDROME
     Dosage: (20 MG/M2 INTRAVENOUS) (20 MG/M2, INTRAVENOUS) (20 MG/M2, INTRAVENOUS)
     Route: 042
     Dates: start: 20090226, end: 20100801
  11. DECITABINE (DECITABINE) LYOPHILIZED POWDER [Suspect]
     Indication: PROPHYLAXIS
     Dosage: (20 MG/M2 INTRAVENOUS) (20 MG/M2, INTRAVENOUS) (20 MG/M2, INTRAVENOUS)
     Route: 042
     Dates: start: 20110105, end: 20110109
  12. DECITABINE (DECITABINE) LYOPHILIZED POWDER [Suspect]
     Indication: MYELODYSPLASTIC SYNDROME
     Dosage: (20 MG/M2 INTRAVENOUS) (20 MG/M2, INTRAVENOUS) (20 MG/M2, INTRAVENOUS)
     Route: 042
     Dates: start: 20110105, end: 20110109

REACTIONS (10)
  - CYSTITIS HAEMORRHAGIC [None]
  - PRESYNCOPE [None]
  - ANAEMIA [None]
  - ALTERED STATE OF CONSCIOUSNESS [None]
  - PNEUMONIA [None]
  - NEUTROPENIC SEPSIS [None]
  - HAEMATURIA [None]
  - GINGIVAL BLEEDING [None]
  - FLUID OVERLOAD [None]
  - PANCYTOPENIA [None]
